FAERS Safety Report 6180909-1 (Version None)
Quarter: 2009Q2

REPORT INFORMATION
  Report Type: 
  Country: None (occurrence: None)
  Receive Date: 20090506
  Receipt Date: 20090423
  Transmission Date: 20091009
  Serious: Yes (Other)
  Sender: FDA-Public Use
  Company Number: BE-AMGEN-US327603

PATIENT
  Age: 52 Year
  Sex: Female
  Weight: 64 kg

DRUGS (4)
  1. ENBREL [Suspect]
     Indication: PSORIASIS
     Route: 058
     Dates: start: 20081218, end: 20090225
  2. ENBREL [Suspect]
     Route: 058
     Dates: start: 20090213, end: 20090225
  3. TRAMADOL HCL [Concomitant]
     Indication: BACK PAIN
     Dosage: NOT PROVIDED
     Route: 048
     Dates: start: 20030101
  4. OMEPRAZOLE [Concomitant]
     Indication: GASTRITIS
     Route: 048
     Dates: start: 20070101

REACTIONS (10)
  - DERMATITIS ALLERGIC [None]
  - DYSPNOEA [None]
  - HOT FLUSH [None]
  - INFLUENZA [None]
  - INJECTION SITE ERYTHEMA [None]
  - INJECTION SITE REACTION [None]
  - INJECTION SITE SWELLING [None]
  - PALPITATIONS [None]
  - PHARYNGITIS [None]
  - TACHYCARDIA [None]
